FAERS Safety Report 22941746 (Version 7)
Quarter: 2023Q4

REPORT INFORMATION
  Report Type: Report from Study
  Country: US (occurrence: US)
  Receive Date: 20230914
  Receipt Date: 20231228
  Transmission Date: 20240109
  Serious: Yes (Hospitalization, Other)
  Sender: FDA-Public Use
  Company Number: US-TAKEDA-2023TUS086739

PATIENT
  Age: 25 Year
  Sex: Female
  Weight: 90 kg

DRUGS (10)
  1. LANADELUMAB [Suspect]
     Active Substance: LANADELUMAB
     Indication: Immune system disorder
     Dosage: 300 MILLIGRAM, Q2WEEKS
     Route: 058
     Dates: start: 20230816
  2. LANADELUMAB [Suspect]
     Active Substance: LANADELUMAB
     Indication: Immunodeficiency
  3. LANADELUMAB [Suspect]
     Active Substance: LANADELUMAB
     Indication: Postural orthostatic tachycardia syndrome
  4. LANADELUMAB [Suspect]
     Active Substance: LANADELUMAB
     Indication: Hypergammaglobulinaemia
  5. GAMUNEX-C [Concomitant]
     Active Substance: HUMAN IMMUNOGLOBULIN G
     Indication: Hypergammaglobulinaemia
     Dosage: UNK
     Route: 065
  6. GAMUNEX-C [Concomitant]
     Active Substance: HUMAN IMMUNOGLOBULIN G
     Indication: Immunodeficiency
  7. SODIUM CHLORIDE [Concomitant]
     Active Substance: SODIUM CHLORIDE
     Dosage: UNK
     Route: 065
  8. TOBRAMYCIN [Concomitant]
     Active Substance: TOBRAMYCIN
     Dosage: 56 DOSAGE FORM, Q4WEEKS
     Route: 065
  9. HEPARIN [Concomitant]
     Active Substance: HEPARIN SODIUM
     Dosage: UNK
     Route: 065
  10. RUCONEST [Concomitant]
     Active Substance: HUMAN C1-ESTERASE INHIBITOR
     Dosage: UNK
     Route: 065

REACTIONS (13)
  - Pulmonary vasculitis [Unknown]
  - Pseudomonas infection [Unknown]
  - Clostridium difficile infection [Unknown]
  - Tracheal haemorrhage [Unknown]
  - Internal haemorrhage [Unknown]
  - Brain oedema [Unknown]
  - Pain [Unknown]
  - Dyspnoea [Unknown]
  - Head injury [Unknown]
  - Fall [Unknown]
  - Weight decreased [Unknown]
  - Headache [Unknown]
  - Hereditary angioedema [Recovered/Resolved]

NARRATIVE: CASE EVENT DATE: 20231205
